FAERS Safety Report 9859217 (Version 2)
Quarter: 2014Q1

REPORT INFORMATION
  Report Type: Spontaneous
  Country: CA (occurrence: None)
  Receive Date: 20140122
  Receipt Date: 20140203
  Transmission Date: 20141002
  Serious: Yes (Life-Threatening, Hospitalization)
  Sender: FDA-Public Use
  Company Number: CA-145505

PATIENT
  Age: 39 Year
  Sex: Male
  Weight: 86 kg

DRUGS (4)
  1. HEPAGAM B [Suspect]
     Indication: ANTIVIRAL PROPHYLAXIS
     Dates: start: 20131214, end: 20131214
  2. LAMIVUDINE [Concomitant]
  3. LASIX [Concomitant]
  4. LACTULOSE [Concomitant]

REACTIONS (5)
  - Hypotension [None]
  - Abdominal distension [None]
  - Haemorrhage [None]
  - Platelet count decreased [None]
  - Coagulopathy [None]
